FAERS Safety Report 15494780 (Version 1)
Quarter: 2018Q4

REPORT INFORMATION
  Report Type: Spontaneous
  Country: GB (occurrence: GB)
  Receive Date: 20181012
  Receipt Date: 20181012
  Transmission Date: 20190205
  Serious: Yes (Disabling)
  Sender: FDA-Public Use
  Company Number: GB-TEVA-2018-GB-963881

PATIENT
  Age: 46 Year
  Sex: Female
  Weight: 92 kg

DRUGS (7)
  1. PROPRANOLOL [Concomitant]
     Active Substance: PROPRANOLOL HYDROCHLORIDE
     Dosage: 3 DOSAGE FORMS DAILY;
     Dates: start: 20180918
  2. LINAGLIPTIN [Concomitant]
     Active Substance: LINAGLIPTIN
     Dosage: 1 DOSAGE FORMS DAILY;
     Dates: start: 20180320
  3. FLUCLOXACILLIN [Concomitant]
     Active Substance: FLUCLOXACILLIN
     Dosage: 4 DOSAGE FORMS DAILY;
     Dates: start: 20180712, end: 20180719
  4. SERTRALINE [Suspect]
     Active Substance: SERTRALINE HYDROCHLORIDE
     Dosage: 50 MILLIGRAM DAILY;
     Dates: start: 20180913
  5. SERTRALINE [Concomitant]
     Active Substance: SERTRALINE HYDROCHLORIDE
     Dosage: 1 DOSAGE FORMS DAILY;
     Dates: start: 20180913
  6. NAPROXEN. [Concomitant]
     Active Substance: NAPROXEN
     Indication: PAIN
     Dosage: TWICE DAILY
     Dates: start: 20171204
  7. OMEPRAZOLE. [Concomitant]
     Active Substance: OMEPRAZOLE
     Dosage: 1 DOSAGE FORMS DAILY;
     Dates: start: 20171204

REACTIONS (3)
  - Hallucination [Recovered/Resolved]
  - Formication [Unknown]
  - Asthenia [Unknown]

NARRATIVE: CASE EVENT DATE: 20180918
